FAERS Safety Report 9983171 (Version 7)
Quarter: 2015Q3

REPORT INFORMATION
  Report Type: Report from Study
  Country: KR (occurrence: KR)
  Receive Date: 20140307
  Receipt Date: 20150824
  Transmission Date: 20151125
  Serious: Yes (Hospitalization)
  Sender: FDA-Public Use
  Company Number: KR-009507513-1402KOR013573

PATIENT
  Age: 60 Year
  Sex: Female

DRUGS (8)
  1. VIRAMID [Suspect]
     Active Substance: RIBAVIRIN
     Dosage: 400 MG, QD
     Route: 048
     Dates: start: 20140402, end: 20140604
  2. PEGINTRON [Suspect]
     Active Substance: PEGINTERFERON ALFA-2B
     Indication: HEPATITIS C
     Dosage: 80 MICROGRAM, QW
     Route: 058
     Dates: start: 20131211, end: 20140326
  3. PEGINTRON [Suspect]
     Active Substance: PEGINTERFERON ALFA-2B
     Dosage: 63 MICROGRAM, QW
     Route: 058
     Dates: start: 20140402, end: 20140605
  4. PEGINTRON [Suspect]
     Active Substance: PEGINTERFERON ALFA-2B
     Dosage: 63 MICROGRAM, QW
     Route: 058
     Dates: start: 20140618, end: 20141105
  5. VIRAMID [Suspect]
     Active Substance: RIBAVIRIN
     Dosage: 600 MG, QD
     Route: 048
     Dates: start: 20140326, end: 20140401
  6. VIRAMID [Suspect]
     Active Substance: RIBAVIRIN
     Indication: HEPATITIS C
     Dosage: 800 MG, QD
     Route: 048
     Dates: start: 20131211, end: 20140325
  7. VIRAMID [Suspect]
     Active Substance: RIBAVIRIN
     Dosage: 200 MG, QD
     Route: 048
     Dates: start: 20140610, end: 20141105
  8. BOCEPREVIR [Suspect]
     Active Substance: BOCEPREVIR
     Indication: HEPATITIS C
     Dosage: 800 MG, TID
     Route: 048
     Dates: start: 20140108, end: 20141105

REACTIONS (5)
  - Lethargy [Recovered/Resolved]
  - Lethargy [Recovered/Resolved]
  - Nausea [Recovered/Resolved]
  - Leukopenia [Recovered/Resolved]
  - Anaemia [Recovered/Resolved]

NARRATIVE: CASE EVENT DATE: 20140226
